FAERS Safety Report 6969351-0 (Version None)
Quarter: 2010Q3

REPORT INFORMATION
  Report Type: 
  Country: None (occurrence: None)
  Receive Date: 20100902
  Receipt Date: 20100817
  Transmission Date: 20110219
  Serious: Yes (Hospitalization, Other)
  Sender: FDA-Public Use
  Company Number: 2010003530

PATIENT
  Age: 69 Year
  Sex: Female

DRUGS (13)
  1. ERLOTINIB (ERLOTINIB) (TABLET) (ERLOTINIB) [Suspect]
     Indication: LUNG ADENOCARCINOMA
     Dosage: (150 MG,QD), ORAL
     Route: 048
     Dates: start: 20090420, end: 20100607
  2. ZOMETA [Suspect]
     Indication: PRODUCT USED FOR UNKNOWN INDICATION
     Dosage: (4 MG, 1 IN 1 M), INTRAVENOUS DRIP
     Route: 041
     Dates: start: 20090617, end: 20091109
  3. KADIAN [Concomitant]
  4. MUCOSTA (REBAMIPIDE) [Concomitant]
  5. NOVAMIN (PROCHLORPERAZINE) [Concomitant]
  6. DICLOFENAC SODIUM [Concomitant]
  7. CODEINE PHOSPHATE (CODEINE PHOSPHATE) [Concomitant]
  8. OPSO (MORPHINE) [Concomitant]
  9. WAKADENIN [Concomitant]
  10. MAGNESIUM OXIDE (MAGNESIUM OXIDE) [Concomitant]
  11. NERIPROCT (NERIPROCT) [Concomitant]
  12. PLATIBIT (ALFACALCIDOL) [Concomitant]
  13. LIPITOR [Concomitant]

REACTIONS (17)
  - DERMATITIS ACNEIFORM [None]
  - EFFUSION [None]
  - FACE OEDEMA [None]
  - HAIR DISORDER [None]
  - HAIR TEXTURE ABNORMAL [None]
  - HYPOCALCAEMIA [None]
  - INFECTION [None]
  - INGROWING NAIL [None]
  - LUNG ADENOCARCINOMA STAGE IV [None]
  - MALIGNANT NEOPLASM PROGRESSION [None]
  - PAIN [None]
  - PARONYCHIA [None]
  - PRURITUS [None]
  - PURPURA [None]
  - SEBORRHOEIC DERMATITIS [None]
  - SKIN ODOUR ABNORMAL [None]
  - XERODERMA [None]
